FAERS Safety Report 8314564-9 (Version None)
Quarter: 2012Q2

REPORT INFORMATION
  Report Type: 
  Country: None (occurrence: None)
  Receive Date: 20120426
  Receipt Date: 20120418
  Transmission Date: 20120825
  Serious: Yes (Other)
  Sender: FDA-Public Use
  Company Number: US-ASTRAZENECA-2012SE10836

PATIENT
  Age: 77 Year
  Sex: Female

DRUGS (4)
  1. NEXIUM [Suspect]
     Route: 048
  2. CHEMOTHERAPY [Suspect]
     Route: 065
  3. COUMADIN [Concomitant]
  4. TAGAMET [Concomitant]

REACTIONS (11)
  - DRY THROAT [None]
  - CARDIAC MURMUR [None]
  - GASTRIC DISORDER [None]
  - THROAT IRRITATION [None]
  - CARDIAC DISORDER [None]
  - OSTEOPOROSIS [None]
  - NASAL DRYNESS [None]
  - METASTASES TO GASTROINTESTINAL TRACT [None]
  - OSTEOPENIA [None]
  - GASTROOESOPHAGEAL REFLUX DISEASE [None]
  - POLYP [None]
